FAERS Safety Report 5563242-8 (Version None)
Quarter: 2007Q4

REPORT INFORMATION
  Report Type: 
  Country: None (occurrence: None)
  Receive Date: 20071212
  Receipt Date: 20071126
  Transmission Date: 20080405
  Serious: Yes (Hospitalization, Other)
  Sender: FDA-Public Use
  Company Number: 2007SP023782

PATIENT
  Age: 18 Year
  Sex: Male

DRUGS (1)
  1. CORICIDIN [Suspect]
     Indication: DRUG ADMINISTRATION ERROR
     Dosage: 16 DF, PO
     Route: 048

REACTIONS (16)
  - AGITATION [None]
  - CLONUS [None]
  - DRUG ABUSER [None]
  - DRUG TOXICITY [None]
  - EYE MOVEMENT DISORDER [None]
  - HEART RATE INCREASED [None]
  - HYPERREFLEXIA [None]
  - HYPERTONIA [None]
  - INTENTIONAL OVERDOSE [None]
  - MYDRIASIS [None]
  - RESPIRATORY RATE INCREASED [None]
  - SEROTONIN SYNDROME [None]
  - SINUS TACHYCARDIA [None]
  - TACHYCARDIA [None]
  - TREMOR [None]
  - UNRESPONSIVE TO STIMULI [None]
